FAERS Safety Report 10450070 (Version 1)
Quarter: 2014Q3

REPORT INFORMATION
  Report Type: Spontaneous
  Country: US (occurrence: US)
  Receive Date: 20140912
  Receipt Date: 20140912
  Transmission Date: 20150326
  Serious: Yes (Hospitalization, Other)
  Sender: FDA-Public Use
  Company Number: US-NOVOPROD-422365

PATIENT
  Sex: Female

DRUGS (3)
  1. LEVEMIR [Suspect]
     Active Substance: INSULIN DETEMIR
     Dosage: 80 U, BID
     Route: 058
     Dates: start: 2014, end: 2014
  2. LEVEMIR [Suspect]
     Active Substance: INSULIN DETEMIR
     Indication: TYPE 2 DIABETES MELLITUS
     Dosage: 10 U, QD
     Route: 058
  3. LEVEMIR [Suspect]
     Active Substance: INSULIN DETEMIR
     Dosage: 8 U, QD
     Route: 058
     Dates: start: 2014

REACTIONS (3)
  - Drug prescribing error [Recovered/Resolved]
  - Weight decreased [Unknown]
  - Diabetic coma [Recovered/Resolved]

NARRATIVE: CASE EVENT DATE: 2014
